FAERS Safety Report 5618927-1 (Version None)
Quarter: 2008Q1

REPORT INFORMATION
  Report Type: 
  Country: None (occurrence: None)
  Receive Date: 20080207
  Receipt Date: 20080205
  Transmission Date: 20080703
  Serious: Yes (Death, Life-Threatening, Hospitalization)
  Sender: FDA-Public Use
  Company Number: US-SANOFI-SYNTHELABO-F01200800191

PATIENT
  Sex: Male

DRUGS (4)
  1. LEUCOVORIN CALCIUM [Suspect]
     Dosage: UNK
     Route: 065
     Dates: start: 20071206, end: 20071206
  2. FLUOROURACIL [Suspect]
     Dosage: UNK
     Route: 065
     Dates: start: 20071206, end: 20071206
  3. OXALIPLATIN [Suspect]
     Indication: RECTAL CANCER
     Dosage: UNK
     Route: 065
     Dates: start: 20071206, end: 20071206
  4. BEVACIZUMAB [Suspect]
     Dosage: UNK
     Route: 065
     Dates: start: 20071106, end: 20071106

REACTIONS (2)
  - CARDIO-RESPIRATORY ARREST [None]
  - DEATH [None]
